FAERS Safety Report 8881668 (Version 1)
Quarter: 2012Q4

REPORT INFORMATION
  Report Type: 
  Country: US (occurrence: US)
  Receive Date: 20121102
  Receipt Date: 20121102
  Transmission Date: 20130627
  Serious: No
  Sender: FDA-Public Use
  Company Number: US-B.I. PHARMACEUTICALS,INC./RIDGEFIELD-2012-BP-27009BP

PATIENT
  Sex: Male
  Weight: 118 kg

DRUGS (8)
  1. PRADAXA [Suspect]
     Indication: CEREBROVASCULAR ACCIDENT PROPHYLAXIS
     Dosage: 300 mg
     Route: 048
     Dates: start: 2009
  2. PRADAXA [Suspect]
     Indication: ATRIAL FIBRILLATION
  3. AMIODARONE [Concomitant]
     Indication: ATRIAL FIBRILLATION
     Dosage: 200 mg
     Route: 048
     Dates: start: 2009
  4. PANTOPRAZOLE [Concomitant]
     Indication: GASTROOESOPHAGEAL REFLUX DISEASE
     Route: 048
     Dates: start: 2011
  5. ASPIRIN [Concomitant]
     Dosage: 81 mg
     Route: 048
     Dates: start: 1983
  6. IMDUR [Concomitant]
     Indication: ANGINA PECTORIS
     Dosage: 30 mg
     Route: 048
     Dates: start: 201202
  7. PRAVASTATIN [Concomitant]
     Indication: BLOOD CHOLESTEROL INCREASED
     Dosage: 20 mg
     Route: 048
     Dates: start: 2011
  8. SPIRONOLACTONE [Concomitant]
     Indication: HYPERTENSION
     Dosage: 25 mg
     Route: 048
     Dates: start: 2011

REACTIONS (1)
  - Neoplasm [Recovered/Resolved]
